FAERS Safety Report 4516623-5 (Version None)
Quarter: 2004Q4

REPORT INFORMATION
  Report Type: 
  Country: None (occurrence: None)
  Receive Date: 20041202
  Receipt Date: 20041013
  Transmission Date: 20050328
  Serious: Yes (Hospitalization, Disabling)
  Sender: FDA-Public Use
  Company Number: DE-MERCK-0410DEU00454

PATIENT
  Age: 80 Year
  Sex: Female
  Weight: 67 kg

DRUGS (8)
  1. VIOXX [Suspect]
     Indication: LOCALISED OSTEOARTHRITIS
     Route: 048
     Dates: start: 20020101, end: 20041001
  2. VIOXX [Suspect]
     Indication: SPINAL DISORDER
     Route: 048
     Dates: start: 20020101, end: 20041001
  3. NITROGLYCERIN [Concomitant]
     Indication: CORONARY ARTERY DISEASE
     Route: 065
     Dates: start: 20020101
  4. AMLODIPINE BESYLATE [Concomitant]
     Route: 065
     Dates: start: 20020101
  5. HYDROCHLOROTHIAZIDE AND IRBESARTAN [Concomitant]
     Route: 065
     Dates: start: 20020101
  6. LEVOTHYROXINE SODIUM [Concomitant]
     Indication: HYPOTHYROIDISM
     Route: 065
  7. FLUTICASONE PROPIONATE AND SALMETEROL XINAFOATE [Concomitant]
     Route: 065
  8. EQUILIN SODIUM SULFATE AND ESTRONE SODIUM SULFATE [Concomitant]
     Indication: MENOPAUSAL SYMPTOMS
     Route: 065

REACTIONS (3)
  - ANGINA PECTORIS [None]
  - CORONARY ARTERY DISEASE [None]
  - ELECTROCARDIOGRAM T WAVE INVERSION [None]
